FAERS Safety Report 8184409-9 (Version None)
Quarter: 2012Q1

REPORT INFORMATION
  Report Type: 
  Country: None (occurrence: None)
  Receive Date: 20120208
  Receipt Date: 20111109
  Transmission Date: 20120608
  Serious: No
  Sender: FDA-Public Use
  Company Number: 2011PP000071

PATIENT
  Age: 61 Year
  Sex: Male

DRUGS (6)
  1. NATROBA [Suspect]
     Indication: LICE INFESTATION
     Dosage: 1X;TOP
     Route: 061
     Dates: start: 20111026, end: 20111026
  2. PREVACID [Concomitant]
  3. ALPRAZOLAM [Concomitant]
  4. LORAZEPAM [Concomitant]
  5. TRAMADOL HCL [Concomitant]
  6. LYRICA [Concomitant]

REACTIONS (1)
  - APPLICATION SITE EXFOLIATION [None]
